FAERS Safety Report 11457360 (Version 2)
Quarter: 2015Q3

REPORT INFORMATION
  Report Type: Report from Study
  Country: US (occurrence: US)
  Receive Date: 20150904
  Receipt Date: 20150921
  Transmission Date: 20151125
  Serious: Yes (Life-Threatening, Hospitalization)
  Sender: FDA-Public Use
  Company Number: PHHO2015US001060

PATIENT
  Age: 44 Year
  Sex: Male
  Weight: 75 kg

DRUGS (6)
  1. ODOMZO [Suspect]
     Active Substance: SONIDEGIB
     Dosage: DOSE BLINDED
     Route: 048
     Dates: start: 20141119
  2. PANTOPRAZOLE [Concomitant]
     Active Substance: PANTOPRAZOLE SODIUM
     Indication: PRODUCT USED FOR UNKNOWN INDICATION
     Dosage: 1 DF (TABLET), QD
     Route: 048
     Dates: start: 20141028
  3. ODOMZO [Suspect]
     Active Substance: SONIDEGIB
     Indication: BASAL CELL CARCINOMA
     Dosage: DOSE BLINDED
     Route: 048
     Dates: start: 20120110, end: 20140729
  4. ODOMZO [Suspect]
     Active Substance: SONIDEGIB
     Dosage: DOSE BLINDED
     Route: 048
     Dates: start: 20140731, end: 20141024
  5. IRON SUPPLEMENTS [Suspect]
     Active Substance: IRON
     Indication: PRODUCT USED FOR UNKNOWN INDICATION
     Dosage: 1 DF (TABLET), QD
     Route: 048
  6. ACETYL-L-CARNITINE [Concomitant]
     Indication: PRODUCT USED FOR UNKNOWN INDICATION
     Dosage: 1 DF (TABLET), QD
     Route: 048

REACTIONS (1)
  - Gastric ulcer [Recovered/Resolved]

NARRATIVE: CASE EVENT DATE: 20141024
